FAERS Safety Report 15244538 (Version 2)
Quarter: 2018Q3

REPORT INFORMATION
  Report Type: Spontaneous
  Country: US (occurrence: US)
  Receive Date: 20180806
  Receipt Date: 20180807
  Transmission Date: 20181010
  Serious: No
  Sender: FDA-Public Use
  Company Number: PHEH2018US031402

PATIENT
  Sex: Female

DRUGS (1)
  1. TOBRAMYCIN. [Suspect]
     Active Substance: TOBRAMYCIN
     Indication: EYE INFECTION
     Route: 047

REACTIONS (2)
  - Dizziness [Unknown]
  - Headache [Unknown]
